FAERS Safety Report 9683894 (Version 1)
Quarter: 2013Q4

REPORT INFORMATION
  Report Type: Spontaneous
  Country: US (occurrence: US)
  Receive Date: 20131112
  Receipt Date: 20131112
  Transmission Date: 20140711
  Serious: No
  Sender: FDA-Public Use
  Company Number: US-BAXTER-2013BAX043691

PATIENT
  Age: 53 Year
  Sex: Female

DRUGS (2)
  1. DIANEAL LOW CALCIUM [Suspect]
     Indication: PERITONEAL DIALYSIS
     Route: 033
  2. DIANEAL LOW CALCIUM [Suspect]
     Dosage: LAST FILL
     Route: 033

REACTIONS (4)
  - Fall [Recovering/Resolving]
  - Ligament rupture [Recovering/Resolving]
  - Local swelling [Recovering/Resolving]
  - Inflammation [Recovering/Resolving]
